FAERS Safety Report 11209366 (Version 2)
Quarter: 2015Q2

REPORT INFORMATION
  Report Type: Spontaneous
  Country: FR (occurrence: FR)
  Receive Date: 20150622
  Receipt Date: 20150625
  Transmission Date: 20150821
  Serious: Yes (Other)
  Sender: FDA-Public Use
  Company Number: PHHY2015FR073066

PATIENT
  Age: 9 Year
  Sex: Female

DRUGS (5)
  1. IMATINIB [Interacting]
     Active Substance: IMATINIB
     Indication: ACUTE LYMPHOCYTIC LEUKAEMIA
     Dosage: 400/300 MG AFTER HR1 BLOCK
     Route: 048
     Dates: start: 20140627
  2. IMATINIB [Interacting]
     Active Substance: IMATINIB
     Dosage: 400/300 MG AFTER HR2 BLOCK
     Route: 048
     Dates: start: 20140718
  3. METHOTREXATE [Suspect]
     Active Substance: METHOTREXATE
     Indication: ACUTE LYMPHOCYTIC LEUKAEMIA
     Dosage: 5780 MG AFTER HR1 BLOCK
     Route: 042
     Dates: start: 20140627
  4. METHOTREXATE [Interacting]
     Active Substance: METHOTREXATE
     Dosage: 5780 MG AFTER HR2 BLOCK
     Route: 042
     Dates: start: 20140718
  5. FOLINIC ACID [Concomitant]
     Active Substance: LEUCOVORIN
     Indication: ACUTE LYMPHOCYTIC LEUKAEMIA
     Dosage: 7.5 MG, (3 NUMBER OF DOSES, AFTER HR1 AND HR2)
     Route: 065

REACTIONS (3)
  - Acute kidney injury [Unknown]
  - Drug interaction [Unknown]
  - Hepatocellular injury [Unknown]
